FAERS Safety Report 16146625 (Version 1)
Quarter: 2019Q2

REPORT INFORMATION
  Report Type: Spontaneous
  Country: US (occurrence: US)
  Receive Date: 20190402
  Receipt Date: 20190402
  Transmission Date: 20190711
  Serious: Yes (Other)
  Sender: FDA-Public Use
  Company Number: US-ROCHE-2289162

PATIENT
  Age: 66 Year
  Sex: Female
  Weight: 56.75 kg

DRUGS (3)
  1. AZATHIOPRINE. [Concomitant]
     Active Substance: AZATHIOPRINE
     Route: 065
  2. PREDNISONE. [Concomitant]
     Active Substance: PREDNISONE
     Route: 065
  3. CELLCEPT [Suspect]
     Active Substance: MYCOPHENOLATE MOFETIL\MYCOPHENOLATE MOFETIL HYDROCHLORIDE
     Indication: DERMATOMYOSITIS
     Dosage: ONGOING: NO
     Route: 065
     Dates: start: 201811, end: 20190219

REACTIONS (6)
  - Hypoaesthesia [Not Recovered/Not Resolved]
  - Dysphagia [Recovered/Resolved]
  - Paraesthesia [Not Recovered/Not Resolved]
  - Choking [Recovered/Resolved]
  - Intentional product use issue [Unknown]
  - Off label use [Unknown]

NARRATIVE: CASE EVENT DATE: 201902
